FAERS Safety Report 9107738 (Version 2)
Quarter: 2013Q1

REPORT INFORMATION
  Report Type: Spontaneous
  Country: US (occurrence: US)
  Receive Date: 20130221
  Receipt Date: 20130326
  Transmission Date: 20140127
  Serious: No
  Sender: FDA-Public Use
  Company Number: US-PFIZER INC-2013063744

PATIENT
  Sex: 0

DRUGS (3)
  1. VENLAFAXINE HYDROCHLORIDE [Suspect]
     Dosage: 150 MG, 1X/DAY
     Route: 048
  2. GABAPENTIN [Concomitant]
     Dosage: 300 MG, 2X/DAY
  3. STRATTERA [Concomitant]
     Dosage: 100 MG, 1X/DAY

REACTIONS (1)
  - Vomiting [Recovered/Resolved]
